FAERS Safety Report 8180753-X (Version None)
Quarter: 2012Q1

REPORT INFORMATION
  Report Type: 
  Country: None (occurrence: None)
  Receive Date: 20120302
  Receipt Date: 20120224
  Transmission Date: 20120608
  Serious: Yes (Other)
  Sender: FDA-Public Use
  Company Number: US-UCBSA-052287

PATIENT
  Sex: Male

DRUGS (7)
  1. KEPPRA [Suspect]
     Dates: start: 20090101
  2. I-CAP VITAMIN DAILY [Concomitant]
  3. LISINOPRIL [Concomitant]
     Route: 048
  4. METOPROLOL SUCCINATE [Concomitant]
  5. VIMPAT [Suspect]
     Indication: EPILEPSY
     Dosage: 100 MG IN THE MORNING 50 MG IN THE EVENING
     Dates: start: 20110701
  6. ASPIRIN [Concomitant]
     Dosage: DAILY DOSE: 81 MG
     Route: 048
  7. VIMPAT [Suspect]
     Dates: start: 20120223

REACTIONS (3)
  - RETINAL DISORDER [None]
  - VISION BLURRED [None]
  - VISUAL ACUITY REDUCED [None]
